FAERS Safety Report 5874441-X (Version None)
Quarter: 2008Q3

REPORT INFORMATION
  Report Type: 
  Country: None (occurrence: None)
  Receive Date: 20080908
  Receipt Date: 20080827
  Transmission Date: 20090109
  Serious: Yes (Hospitalization, Other)
  Sender: FDA-Public Use
  Company Number: US-PFIZER INC-2008071871

PATIENT
  Sex: Female
  Weight: 107 kg

DRUGS (10)
  1. CHANTIX [Suspect]
  2. NEXIUM [Concomitant]
  3. IRON [Concomitant]
  4. IBUPROFEN [Concomitant]
  5. LEVOTHYROXINE SODIUM [Concomitant]
  6. HYDROCODONE BITARTRATE [Concomitant]
  7. NIFEDIPINE [Concomitant]
  8. WELLBUTRIN XL [Concomitant]
  9. CYCLOBENZAPRINE HCL [Concomitant]
  10. ALL OTHER THERAPEUTIC PRODUCTS [Concomitant]

REACTIONS (3)
  - CEREBROVASCULAR ACCIDENT [None]
  - THROMBECTOMY [None]
  - THROMBOSIS [None]
